FAERS Safety Report 8249756-0 (Version None)
Quarter: 2012Q2

REPORT INFORMATION
  Report Type: 
  Country: None (occurrence: None)
  Receive Date: 20120402
  Receipt Date: 20120320
  Transmission Date: 20120825
  Serious: Yes (Hospitalization, Other)
  Sender: FDA-Public Use
  Company Number: PHEH2012US005528

PATIENT
  Sex: Female

DRUGS (1)
  1. EXJADE [Suspect]
     Indication: IRON METABOLISM DISORDER
     Dosage: 1500 MG, DAILY
     Route: 048
     Dates: start: 20120303, end: 20120313

REACTIONS (8)
  - MUSCULOSKELETAL PAIN [None]
  - HYPERHIDROSIS [None]
  - SPLENIC INFARCTION [None]
  - NAUSEA [None]
  - DYSGEUSIA [None]
  - ABDOMINAL DISTENSION [None]
  - CHEST PAIN [None]
  - SPLENOMEGALY [None]
